FAERS Safety Report 7102911-5 (Version None)
Quarter: 2010Q4

REPORT INFORMATION
  Report Type: 
  Country: None (occurrence: None)
  Receive Date: 20101115
  Receipt Date: 20101104
  Transmission Date: 20110411
  Serious: Yes (Other)
  Sender: FDA-Public Use
  Company Number: FR-JNJFOC-20101101279

PATIENT
  Age: 14 Year
  Sex: Female
  Weight: 45 kg

DRUGS (3)
  1. RISPERDAL [Suspect]
     Indication: AUTISM
     Dosage: 1MG/ML - 0 - 1.5MG/ML
     Route: 048
  2. RISPERDAL [Suspect]
     Dosage: 1MG/ML - 0 - 2MG/ML
     Route: 048
  3. URBANYL [Concomitant]
     Indication: PRODUCT USED FOR UNKNOWN INDICATION
     Dosage: MORNING AND EVENING
     Route: 048

REACTIONS (5)
  - DRUG INEFFECTIVE [None]
  - DYSKINESIA [None]
  - HYPERKINESIA [None]
  - OFF LABEL USE [None]
  - SLEEP DISORDER [None]
